FAERS Safety Report 8487896-1 (Version None)
Quarter: 2012Q3

REPORT INFORMATION
  Report Type: 
  Country: None (occurrence: None)
  Receive Date: 20120705
  Receipt Date: 20120628
  Transmission Date: 20120928
  Serious: Yes (Other)
  Sender: FDA-Public Use
  Company Number: US-PFIZER INC-2012156218

PATIENT
  Sex: Male
  Weight: 77.098 kg

DRUGS (10)
  1. REVATIO [Suspect]
     Indication: ANTICOAGULANT THERAPY
     Dosage: 25 MG, 3X/DAY
     Dates: start: 20120601
  2. REVATIO [Suspect]
     Indication: HYPERTENSION
  3. OXYGEN [Concomitant]
     Indication: DYSPNOEA
     Dosage: UNK
  4. REVATIO [Suspect]
     Indication: DYSPNOEA
  5. NITROGLYCERIN [Suspect]
     Indication: ANGINA PECTORIS
     Dosage: UNK
  6. TOPROL-XL [Concomitant]
     Indication: CARDIAC DISORDER
     Dosage: 50 MG, DAILY
  7. WARFARIN SODIUM [Concomitant]
     Indication: ANTICOAGULANT THERAPY
     Dosage: UNK
  8. REVATIO [Suspect]
     Indication: LUNG DISORDER
  9. REVATIO [Suspect]
     Indication: GAIT DISTURBANCE
  10. MINOXIDIL [Concomitant]
     Indication: HYPERTENSION
     Dosage: 5 MG, 2X/DAY

REACTIONS (5)
  - DRUG INEFFECTIVE [None]
  - DRUG INTERACTION [None]
  - EXTRASYSTOLES [None]
  - DYSPNOEA [None]
  - DIZZINESS [None]
